FAERS Safety Report 25832793 (Version 1)
Quarter: 2025Q3

REPORT INFORMATION
  Report Type: Spontaneous
  Country: US (occurrence: None)
  Receive Date: 20250922
  Receipt Date: 20250922
  Transmission Date: 20251021
  Serious: No
  Sender: FDA-CTU
  Company Number: None

PATIENT
  Age: 35 Year
  Sex: Female

DRUGS (1)
  1. TREMFYA [Suspect]
     Active Substance: GUSELKUMAB
     Indication: Inflammatory bowel disease
     Dosage: OTHER FREQUENCY : EVERY 4 WEEKS;?
     Route: 058
     Dates: start: 20250312

REACTIONS (6)
  - Pain in extremity [None]
  - Burning sensation [None]
  - Injection site pain [None]
  - Wrong technique in product usage process [None]
  - Incorrect dose administered [None]
  - Product use issue [None]

NARRATIVE: CASE EVENT DATE: 20250611
